FAERS Safety Report 15830524 (Version 2)
Quarter: 2019Q1

REPORT INFORMATION
  Report Type: Report from Study
  Country: None (occurrence: US)
  Receive Date: 20190115
  Receipt Date: 20190202
  Transmission Date: 20190417
  Serious: Yes (Other)
  Sender: FDA-Public Use
  Company Number: US-ABBVIE-19K-163-2615739-00

PATIENT
  Age: 64 Year
  Sex: Female
  Weight: 63.56 kg

DRUGS (3)
  1. HUMIRA [Suspect]
     Active Substance: ADALIMUMAB
     Indication: COLITIS ULCERATIVE
     Route: 058
     Dates: start: 2007, end: 201901
  2. ASACOL [Concomitant]
     Active Substance: MESALAMINE
     Indication: COLITIS ULCERATIVE
  3. AZATHIOPRINE. [Concomitant]
     Active Substance: AZATHIOPRINE
     Indication: COLITIS ULCERATIVE

REACTIONS (19)
  - Rash macular [Unknown]
  - Skin disorder [Unknown]
  - Blister [Recovering/Resolving]
  - Swelling [Unknown]
  - Haemorrhage [Unknown]
  - Purulence [Unknown]
  - Pain of skin [Unknown]
  - Oral discomfort [Not Recovered/Not Resolved]
  - Vaginal infection [Recovered/Resolved]
  - Skin toxicity [Unknown]
  - Skin ulcer [Unknown]
  - Lip haemorrhage [Not Recovered/Not Resolved]
  - Mouth ulceration [Unknown]
  - Lip swelling [Not Recovered/Not Resolved]
  - Injection site pain [Unknown]
  - Rash vesicular [Unknown]
  - Skin discolouration [Unknown]
  - Genital herpes [Recovered/Resolved]
  - Blood urine present [Recovered/Resolved]

NARRATIVE: CASE EVENT DATE: 201812
